FAERS Safety Report 6700383-3 (Version None)
Quarter: 2010Q2

REPORT INFORMATION
  Report Type: 
  Country: None (occurrence: None)
  Receive Date: 20100428
  Receipt Date: 20100419
  Transmission Date: 20101027
  Serious: Yes (Hospitalization)
  Sender: FDA-Public Use
  Company Number: FR-ROCHE-698662

PATIENT
  Sex: Female

DRUGS (3)
  1. MYCOPHENOLATE MOFETIL [Suspect]
     Route: 065
     Dates: start: 20060629
  2. BELATACEPT [Suspect]
     Route: 042
     Dates: start: 20060901
  3. CORTANCYL [Suspect]
     Route: 065
     Dates: start: 20061212

REACTIONS (1)
  - ACUTE RESPIRATORY DISTRESS SYNDROME [None]
